FAERS Safety Report 4958963-1 (Version None)
Quarter: 2006Q1

REPORT INFORMATION
  Report Type: 
  Country: None (occurrence: None)
  Receive Date: 20060327
  Receipt Date: 20060317
  Transmission Date: 20060701
  Serious: No
  Sender: FDA-Public Use
  Company Number: 2006-140025-NL

PATIENT
  Sex: Female

DRUGS (1)
  1. VECURONIUM BROMIDE [Suspect]

REACTIONS (2)
  - ASTHMA [None]
  - PROCEDURAL COMPLICATION [None]
